FAERS Safety Report 9507956 (Version 3)
Quarter: 2013Q3

REPORT INFORMATION
  Report Type: Spontaneous
  Country: GB (occurrence: GB)
  Receive Date: 20130909
  Receipt Date: 20130911
  Transmission Date: 20140515
  Serious: Yes (Disabling, Other)
  Sender: FDA-Public Use
  Company Number: GB-PFIZER INC-2013159387

PATIENT
  Age: 51 Year
  Sex: Female
  Weight: 95 kg

DRUGS (5)
  1. GABAPENTIN [Suspect]
     Dosage: 100 MG, 3X/DAY
     Route: 048
     Dates: start: 20120316, end: 20120511
  2. GABAPENTIN [Suspect]
     Dosage: 200 MG, 3X/DAY
     Route: 048
     Dates: start: 20120511, end: 20120626
  3. GABAPENTIN [Suspect]
     Dosage: 300 MG, 3X/DAY
     Route: 048
     Dates: start: 20120626, end: 20120822
  4. DIHYDROCODEINE [Concomitant]
     Dosage: 60 MG, 2X/DAY
     Route: 048
  5. CO-DYDRAMOL [Concomitant]
     Dosage: UNK
     Route: 048

REACTIONS (2)
  - Deafness neurosensory [Not Recovered/Not Resolved]
  - Tinnitus [Not Recovered/Not Resolved]
